FAERS Safety Report 14205272 (Version 2)
Quarter: 2017Q4

REPORT INFORMATION
  Report Type: Spontaneous
  Country: US (occurrence: US)
  Receive Date: 20171120
  Receipt Date: 20171122
  Transmission Date: 20180321
  Serious: No
  Sender: FDA-Public Use
  Company Number: US-BAYER-2017-223805

PATIENT
  Age: 64 Year
  Sex: Female
  Weight: 70 kg

DRUGS (1)
  1. MIRALAX [Suspect]
     Active Substance: POLYETHYLENE GLYCOL 3350
     Indication: GASTROINTESTINAL MOTILITY DISORDER
     Dosage: 0.5 DF, UNK
     Route: 048
     Dates: start: 2007

REACTIONS (5)
  - Poor quality drug administered [Unknown]
  - Product use issue [Unknown]
  - Underdose [Unknown]
  - Product use in unapproved indication [Unknown]
  - Product contamination physical [Unknown]

NARRATIVE: CASE EVENT DATE: 2007
